FAERS Safety Report 6891930-X (Version None)
Quarter: 2010Q3

REPORT INFORMATION
  Report Type: 
  Country: None (occurrence: None)
  Receive Date: 20100731
  Receipt Date: 20071126
  Transmission Date: 20110219
  Serious: No
  Sender: FDA-Public Use
  Company Number: US-PFIZER INC-2007090749

PATIENT
  Sex: Male

DRUGS (1)
  1. NORVASC [Suspect]
     Dates: start: 19970101, end: 20060101

REACTIONS (3)
  - OEDEMA [None]
  - RASH [None]
  - URTICARIA [None]
